FAERS Safety Report 6097942-0 (Version None)
Quarter: 2009Q1

REPORT INFORMATION
  Report Type: 
  Country: None (occurrence: None)
  Receive Date: 20090227
  Receipt Date: 20090219
  Transmission Date: 20090719
  Serious: Yes (Hospitalization)
  Sender: FDA-Public Use
  Company Number: US-GENENTECH-277866

PATIENT
  Age: 71 Year
  Sex: Male

DRUGS (10)
  1. RITUXAN [Suspect]
     Indication: DIFFUSE LARGE B-CELL LYMPHOMA
     Dosage: UNK
     Route: 042
     Dates: start: 20070901
  2. REVLIMID [Suspect]
     Indication: DIFFUSE LARGE B-CELL LYMPHOMA
     Dosage: 20 MG, QD
     Route: 048
  3. COREG [Concomitant]
     Indication: DRUG USE FOR UNKNOWN INDICATION
  4. WELLBUTRIN [Concomitant]
     Indication: DRUG USE FOR UNKNOWN INDICATION
  5. VALTREX [Concomitant]
     Indication: DRUG USE FOR UNKNOWN INDICATION
  6. LIPITOR [Concomitant]
     Indication: DRUG USE FOR UNKNOWN INDICATION
  7. FLOMAX [Concomitant]
     Indication: DRUG USE FOR UNKNOWN INDICATION
  8. OMEPRAZOLE [Concomitant]
     Indication: DRUG USE FOR UNKNOWN INDICATION
  9. OXYCONTIN [Concomitant]
     Indication: DRUG USE FOR UNKNOWN INDICATION
  10. MOTRIN [Concomitant]
     Indication: DRUG USE FOR UNKNOWN INDICATION

REACTIONS (3)
  - COLITIS [None]
  - DISEASE PROGRESSION [None]
  - PLATELET COUNT DECREASED [None]
